FAERS Safety Report 6984973-9 (Version None)
Quarter: 2010Q3

REPORT INFORMATION
  Report Type: 
  Country: None (occurrence: None)
  Receive Date: 20100915
  Receipt Date: 20100907
  Transmission Date: 20110219
  Serious: Yes (Other)
  Sender: FDA-Public Use
  Company Number: DE-BAYER-201038930GPV

PATIENT
  Sex: Male

DRUGS (4)
  1. LEVITRA [Suspect]
     Indication: ERECTILE DYSFUNCTION
     Route: 048
  2. LEVITRA [Suspect]
     Route: 048
  3. LEVITRA [Suspect]
     Route: 048
  4. LEVITRA [Suspect]
     Route: 048

REACTIONS (4)
  - CONJUNCTIVITIS [None]
  - HEADACHE [None]
  - NASAL CONGESTION [None]
  - OPTIC ISCHAEMIC NEUROPATHY [None]
